FAERS Safety Report 6883156-0 (Version None)
Quarter: 2010Q3

REPORT INFORMATION
  Report Type: 
  Country: None (occurrence: None)
  Receive Date: 20100727
  Receipt Date: 20070702
  Transmission Date: 20110219
  Serious: Yes (Hospitalization, Other)
  Sender: FDA-Public Use
  Company Number: US-PFIZER INC-2006108665

PATIENT
  Sex: Male
  Weight: 113.4 kg

DRUGS (2)
  1. CELEBREX [Suspect]
     Indication: PAIN
     Dates: start: 19990101
  2. VIOXX [Suspect]
     Indication: PAIN
     Dates: start: 19990601

REACTIONS (1)
  - CEREBROVASCULAR ACCIDENT [None]
